FAERS Safety Report 15629378 (Version 7)
Quarter: 2019Q1

REPORT INFORMATION
  Report Type: Spontaneous
  Country: DE (occurrence: DE)
  Receive Date: 20181117
  Receipt Date: 20190301
  Transmission Date: 20190417
  Serious: Yes (Hospitalization, Other)
  Sender: FDA-Public Use
  Company Number: DE-ROCHE-2155681

PATIENT
  Age: 23 Year
  Sex: Female
  Weight: 83 kg

DRUGS (22)
  1. HAEMATE [Concomitant]
     Active Substance: ANTIHEMOPHILIC FACTOR HUMAN
     Indication: PRODUCT USED FOR UNKNOWN INDICATION
     Route: 065
     Dates: start: 201803
  2. DEXAMETHASONE. [Concomitant]
     Active Substance: DEXAMETHASONE
  3. OMEPRAZOL [Concomitant]
     Active Substance: OMEPRAZOLE
     Route: 048
     Dates: start: 20181107
  4. OFATUMUMAB [Concomitant]
     Active Substance: OFATUMUMAB
     Indication: ACQUIRED HAEMOPHILIA
     Dosage: SECOND TO FIFTH ADMINISTRATION OF OFATUMUMAB WAS DONE, SECOND ADMINISTRATION WAS DONE WITH REDUCED A
     Route: 065
     Dates: start: 201701, end: 201702
  5. OFATUMUMAB [Concomitant]
     Active Substance: OFATUMUMAB
     Route: 065
     Dates: start: 20161220
  6. CIPRALEX [Concomitant]
     Active Substance: ESCITALOPRAM OXALATE
     Indication: DEPRESSION
     Route: 048
     Dates: start: 201810
  7. FLUCONAZOL [Concomitant]
     Active Substance: FLUCONAZOLE
     Indication: IMMUNOSUPPRESSION
     Route: 048
     Dates: start: 201810
  8. HAEMOCTIN [Concomitant]
     Indication: ACQUIRED HAEMOPHILIA
  9. ACICLOVIR [Concomitant]
     Active Substance: ACYCLOVIR
     Indication: VIRAL INFECTION
     Route: 048
     Dates: start: 201810
  10. RITUXIMAB. [Concomitant]
     Active Substance: RITUXIMAB
     Indication: AUTOIMMUNE HAEMOLYTIC ANAEMIA
     Route: 065
     Dates: start: 201803
  11. IMMUNE GLOBULIN NOS [Concomitant]
     Active Substance: IMMUNE GLOBULIN NOS
     Route: 065
  12. HEMLIBRA [Suspect]
     Active Substance: EMICIZUMAB-KXWH
     Indication: VON WILLEBRAND^S DISEASE
     Dosage: LAST DOSE OF EMICIZUMAB WAS REPORTED AS ADMINISTERED ON 06/NOV/2018
     Route: 058
     Dates: start: 201806
  13. PRIVIGEN [Concomitant]
     Active Substance: HUMAN IMMUNOGLOBULIN G
     Indication: ACQUIRED HAEMOPHILIA
     Route: 042
  14. HEMLIBRA [Suspect]
     Active Substance: EMICIZUMAB-KXWH
     Indication: AUTOIMMUNE DISORDER
     Dosage: MOST RECENT DOSE ON 29/MAY/2018
     Route: 058
     Dates: start: 20180508
  15. HEMLIBRA [Suspect]
     Active Substance: EMICIZUMAB-KXWH
     Indication: ACQUIRED HAEMOPHILIA
     Route: 058
     Dates: start: 20180509
  16. HEMLIBRA [Suspect]
     Active Substance: EMICIZUMAB-KXWH
     Indication: HAEMORRHAGIC DIATHESIS
  17. BELARA [Suspect]
     Active Substance: CHLORMADINONE ACETATE\ETHINYL ESTRADIOL
     Indication: CONTRACEPTION
     Dosage: ONE DF PER DAY ON DAY 1-21
     Route: 048
     Dates: start: 201806, end: 20181106
  18. EPTACOG ALFA [Concomitant]
     Active Substance: COAGULATION FACTOR VIIA RECOMBINANT HUMAN
     Indication: ACQUIRED HAEMOPHILIA
     Dosage: 13X7 MG AND 2X2 MG, 8 DAYS
     Route: 065
     Dates: start: 20161019
  19. RITUXIMAB. [Concomitant]
     Active Substance: RITUXIMAB
     Dosage: EIGHT TIMES
     Route: 065
     Dates: start: 2006, end: 2010
  20. INTRATECT [Concomitant]
     Active Substance: HUMAN IMMUNOGLOBULIN G
     Indication: PRODUCT USED FOR UNKNOWN INDICATION
     Route: 065
     Dates: start: 201605
  21. AZATHIOPRINE. [Concomitant]
     Active Substance: AZATHIOPRINE
     Indication: PRODUCT USED FOR UNKNOWN INDICATION
  22. CICLOSPORIN A [Concomitant]
     Active Substance: CYCLOSPORINE

REACTIONS (3)
  - Pulmonary embolism [Recovered/Resolved]
  - Intentional product use issue [Unknown]
  - Off label use [Unknown]

NARRATIVE: CASE EVENT DATE: 20181106
